FAERS Safety Report 19001553 (Version 1)
Quarter: 2021Q1

REPORT INFORMATION
  Report Type: Spontaneous
  Country: US (occurrence: US)
  Receive Date: 20210311
  Receipt Date: 20210311
  Transmission Date: 20210420
  Serious: Yes (Other)
  Sender: FDA-Public Use
  Company Number: None

PATIENT
  Age: 36 Year
  Sex: Female
  Weight: 61.2 kg

DRUGS (6)
  1. BENICAR [Concomitant]
     Active Substance: OLMESARTAN MEDOXOMIL
  2. ONE A DAY WOMEN^S MULTIVITAMIN [Concomitant]
  3. TRILEPTAL [Concomitant]
     Active Substance: OXCARBAZEPINE
  4. LATUDA [Suspect]
     Active Substance: LURASIDONE HYDROCHLORIDE
     Indication: SCHIZOAFFECTIVE DISORDER
     Dosage: ?          QUANTITY:1 TABLET(S);?
     Route: 048
     Dates: start: 20210123, end: 20210307
  5. BYSTOLIC [Concomitant]
     Active Substance: NEBIVOLOL HYDROCHLORIDE
  6. MEDTRONIC LINQ ILR [Concomitant]

REACTIONS (5)
  - Palpitations [None]
  - Ventricular extrasystoles [None]
  - Arrhythmia [None]
  - Heart rate irregular [None]
  - Dehydration [None]

NARRATIVE: CASE EVENT DATE: 20210226
